FAERS Safety Report 7107566-1 (Version None)
Quarter: 2010Q4

REPORT INFORMATION
  Report Type: 
  Country: None (occurrence: None)
  Receive Date: 20101117
  Receipt Date: 20101116
  Transmission Date: 20110411
  Serious: Yes (Other)
  Sender: FDA-Public Use
  Company Number: US-PFIZER INC-2010102473

PATIENT
  Sex: Female

DRUGS (8)
  1. CHANTIX [Suspect]
     Indication: SMOKING CESSATION THERAPY
     Dosage: UNK
     Dates: start: 20091001, end: 20091101
  2. RANITIDINE [Concomitant]
     Indication: GASTROOESOPHAGEAL REFLUX DISEASE
     Dosage: UNK
     Dates: start: 19940101
  3. LORTAB [Concomitant]
     Indication: PAIN
     Dosage: UNK
     Dates: start: 20060101
  4. SOMA [Concomitant]
     Indication: PAIN
     Dosage: UNK
     Dates: start: 20060101
  5. CELEXA [Concomitant]
     Indication: DEPRESSION
     Dosage: UNK
     Dates: start: 20060101
  6. NEURONTIN [Concomitant]
     Indication: NEURALGIA
     Dosage: UNK
     Dates: start: 20060101
  7. GEMFIBROZIL [Concomitant]
     Indication: BLOOD CHOLESTEROL
     Dosage: UNK
     Dates: start: 20080101
  8. PRAVASTATIN [Concomitant]
     Indication: BLOOD CHOLESTEROL
     Dosage: UNK
     Dates: start: 20080101

REACTIONS (4)
  - ANXIETY [None]
  - DEPRESSION [None]
  - HOMICIDAL IDEATION [None]
  - SUICIDAL IDEATION [None]
